FAERS Safety Report 7291024-8 (Version None)
Quarter: 2011Q1

REPORT INFORMATION
  Report Type: 
  Country: None (occurrence: None)
  Receive Date: 20110214
  Receipt Date: 20110207
  Transmission Date: 20110831
  Serious: Yes (Life-Threatening, Hospitalization)
  Sender: FDA-Public Use
  Company Number: PHHY2011IT11127

PATIENT
  Sex: Female

DRUGS (1)
  1. PACLITAXEL [Suspect]
     Indication: ENDOMETRIAL CANCER
     Dosage: 100 MG, 30 ML
     Dates: start: 20100802, end: 20100802

REACTIONS (4)
  - CHEST DISCOMFORT [None]
  - ABDOMINAL PAIN [None]
  - LOSS OF CONSCIOUSNESS [None]
  - CARDIO-RESPIRATORY ARREST [None]
